FAERS Safety Report 18552433 (Version 1)
Quarter: 2020Q4

REPORT INFORMATION
  Report Type: Report from Study
  Country: US (occurrence: US)
  Receive Date: 20201127
  Receipt Date: 20201127
  Transmission Date: 20210114
  Serious: Yes (Hospitalization)
  Sender: FDA-Public Use
  Company Number: US-JNJFOC-20201138458

PATIENT
  Age: 30 Year
  Sex: Male

DRUGS (12)
  1. OMEPRAZOLE. [Concomitant]
     Active Substance: OMEPRAZOLE
  2. CLINDAMYCIN. [Concomitant]
     Active Substance: CLINDAMYCIN
  3. LOPERAMIDE [Concomitant]
     Active Substance: LOPERAMIDE
  4. ZOLPIDEM [Concomitant]
     Active Substance: ZOLPIDEM TARTRATE
  5. NORCO [Concomitant]
     Active Substance: ACETAMINOPHEN\HYDROCODONE BITARTRATE
  6. PREDNISONE. [Concomitant]
     Active Substance: PREDNISONE
  7. BELSOMRA [Concomitant]
     Active Substance: SUVOREXANT
     Indication: CROHN^S DISEASE
  8. XARELTO [Concomitant]
     Active Substance: RIVAROXABAN
  9. IMODIUM AD [Concomitant]
     Active Substance: LOPERAMIDE HYDROCHLORIDE
  10. STELARA [Suspect]
     Active Substance: USTEKINUMAB
     Indication: CROHN^S DISEASE
     Route: 058
  11. HYDROXYUREA. [Concomitant]
     Active Substance: HYDROXYUREA
  12. TRAMADOL. [Concomitant]
     Active Substance: TRAMADOL

REACTIONS (1)
  - Colon cancer [Recovered/Resolved]
